FAERS Safety Report 7380707-7 (Version None)
Quarter: 2011Q1

REPORT INFORMATION
  Report Type: 
  Country: None (occurrence: None)
  Receive Date: 20110329
  Receipt Date: 20110324
  Transmission Date: 20110831
  Serious: No
  Sender: FDA-Public Use
  Company Number: US-PFIZER INC-2011066357

PATIENT
  Sex: Female
  Weight: 60.317 kg

DRUGS (8)
  1. PROTONIX [Suspect]
     Dosage: 40 MG, 1X/DAY AS NEEDED
     Route: 048
     Dates: start: 20110301
  2. ASPIRIN [Concomitant]
     Dosage: UNK
  3. CARVEDILOL [Concomitant]
     Dosage: 12 MG, UNK
  4. RAMIPRIL [Concomitant]
     Dosage: 2.5 MG, UNK
  5. PLAVIX [Concomitant]
     Dosage: UNK
  6. POTASSIUM [Concomitant]
     Dosage: UNK
  7. PROTONIX [Suspect]
     Dosage: 40 MG, 2X/DAY
     Route: 048
     Dates: end: 20110301
  8. PROTONIX [Suspect]
     Indication: GASTROOESOPHAGEAL REFLUX DISEASE
     Dosage: 40 MG, 2X/DAY
     Route: 048
     Dates: start: 20100401, end: 20101101

REACTIONS (5)
  - DYSPEPSIA [None]
  - INCORRECT DOSE ADMINISTERED [None]
  - INAPPROPRIATE SCHEDULE OF DRUG ADMINISTRATION [None]
  - GASTROINTESTINAL DISORDER [None]
  - DRUG INEFFECTIVE [None]
